FAERS Safety Report 24975479 (Version 2)
Quarter: 2025Q1

REPORT INFORMATION
  Report Type: Report from Study
  Country: US (occurrence: US)
  Receive Date: 20250217
  Receipt Date: 20250303
  Transmission Date: 20250408
  Serious: Yes (Other)
  Sender: ABBVIE
  Company Number: US-ABBVIE-6136243

PATIENT
  Age: 50 Year
  Sex: Male
  Weight: 117.93 kg

DRUGS (10)
  1. SKYRIZI [Suspect]
     Active Substance: RISANKIZUMAB-RZAA
     Indication: Psoriasis
     Dosage: FORM STRENGTH: 150 MILLIGRAM
     Route: 058
     Dates: start: 20230503
  2. NABUMETONE [Concomitant]
     Active Substance: NABUMETONE
     Indication: Product used for unknown indication
  3. LOSARTAN [Concomitant]
     Active Substance: LOSARTAN
     Indication: Blood pressure measurement
  4. ATORVASTATIN [Concomitant]
     Active Substance: ATORVASTATIN
     Indication: Blood cholesterol
  5. DOVATO [Concomitant]
     Active Substance: DOLUTEGRAVIR SODIUM\LAMIVUDINE
     Indication: HIV infection
  6. SYNJARDY XR [Concomitant]
     Active Substance: EMPAGLIFLOZIN\METFORMIN HYDROCHLORIDE
     Indication: Diabetes mellitus
  7. OXYCODONE [Concomitant]
     Active Substance: OXYCODONE
     Indication: Pain
  8. ROPINIROLE [Concomitant]
     Active Substance: ROPINIROLE
     Indication: Restless legs syndrome
  9. OZEMPIC [Concomitant]
     Active Substance: SEMAGLUTIDE
     Indication: Diabetes mellitus
  10. OMEPRAZOLE [Concomitant]
     Active Substance: OMEPRAZOLE
     Indication: Gastric ulcer

REACTIONS (12)
  - Myocardial infarction [Recovering/Resolving]
  - Herpes zoster [Recovering/Resolving]
  - Fungal infection [Recovered/Resolved]
  - Oral discomfort [Recovered/Resolved]
  - Psoriasis [Recovered/Resolved]
  - Abdominal distension [Recovered/Resolved]
  - Oral pain [Recovered/Resolved]
  - Abdominal pain upper [Recovered/Resolved]
  - Tongue coated [Not Recovered/Not Resolved]
  - Pain [Recovered/Resolved]
  - Hypopnoea [Recovered/Resolved]
  - Paraesthesia oral [Recovered/Resolved]

NARRATIVE: CASE EVENT DATE: 20240801
